FAERS Safety Report 8588230-9 (Version None)
Quarter: 2012Q3

REPORT INFORMATION
  Report Type: 
  Country: None (occurrence: None)
  Receive Date: 20120803
  Receipt Date: 20120803
  Transmission Date: 20120928
  Serious: Yes (Other)
  Sender: FDA-Public Use
  Company Number: None

PATIENT
  Age: 72 Year
  Sex: Male
  Weight: 74.8435 kg

DRUGS (1)
  1. TRAZODONE HCL [Suspect]
     Indication: INSOMNIA
     Dosage: 100MG ONCE PER DAY PO
     Route: 048
     Dates: start: 20110510, end: 20120515

REACTIONS (4)
  - HYPOTENSION [None]
  - HEART RATE DECREASED [None]
  - DYSPNOEA [None]
  - FATIGUE [None]
